FAERS Safety Report 5927177-0 (Version None)
Quarter: 2008Q4

REPORT INFORMATION
  Report Type: 
  Country: None (occurrence: None)
  Receive Date: 20081022
  Receipt Date: 20081010
  Transmission Date: 20090506
  Serious: Yes (Other)
  Sender: FDA-Public Use
  Company Number: SE-PFIZER INC-2008075518

PATIENT
  Sex: Female

DRUGS (7)
  1. DEPO-PROVERA SUSPENSION/INJ [Suspect]
     Dosage: FREQ:LAST INJECTION OF THE FIRST CYCLE
     Dates: start: 20060101, end: 20060101
  2. DEPO-PROVERA SUSPENSION/INJ [Suspect]
     Dosage: FREQ:FIRST INJECTION OF THE SECOND CYCLE
     Dates: start: 20071127, end: 20071127
  3. LEVONORGESTREL [Suspect]
     Dates: start: 20061201, end: 20071127
  4. ALVEDON [Concomitant]
  5. TRADOLAN [Concomitant]
  6. FOLACIN [Concomitant]
  7. METHOTREXATE [Concomitant]

REACTIONS (1)
  - BREAST CYST [None]
